FAERS Safety Report 19551116 (Version 1)
Quarter: 2021Q3

REPORT INFORMATION
  Report Type: Spontaneous
  Country: US (occurrence: US)
  Receive Date: 20210715
  Receipt Date: 20210715
  Transmission Date: 20211014
  Serious: Yes (Hospitalization)
  Sender: FDA-Public Use
  Company Number: None

PATIENT
  Age: 51 Year
  Sex: Female

DRUGS (8)
  1. FOLIC ACID. [Concomitant]
     Active Substance: FOLIC ACID
  2. OXYCODONE [Concomitant]
     Active Substance: OXYCODONE
  3. TRAMADOL. [Concomitant]
     Active Substance: TRAMADOL
  4. XELJANZ [Suspect]
     Active Substance: TOFACITINIB CITRATE
     Indication: RHEUMATOID ARTHRITIS
     Route: 048
     Dates: start: 20190524
  5. TURMERIC [Concomitant]
     Active Substance: HERBALS\TURMERIC
  6. PREDNISONE. [Concomitant]
     Active Substance: PREDNISONE
  7. DICLOFENAC [Concomitant]
     Active Substance: DICLOFENAC
  8. CYCLOBENZAPRINE. [Concomitant]
     Active Substance: CYCLOBENZAPRINE

REACTIONS (1)
  - Therapy interrupted [None]

NARRATIVE: CASE EVENT DATE: 20210616
